FAERS Safety Report 6186846-0 (Version None)
Quarter: 2009Q2

REPORT INFORMATION
  Report Type: 
  Country: None (occurrence: None)
  Receive Date: 20090508
  Receipt Date: 20090508
  Transmission Date: 20091009
  Serious: No
  Sender: FDA-Public Use
  Company Number: None

PATIENT
  Age: 61 Year
  Sex: Male
  Weight: 88 kg

DRUGS (2)
  1. TERAZOSIN HCL [Suspect]
     Indication: BENIGN PROSTATIC HYPERPLASIA
     Dosage: 4 MG AT BEDTIME PO
     Route: 048
     Dates: start: 20090226, end: 20090310
  2. TERAZOSIN HCL [Suspect]
     Indication: URINARY TRACT DISORDER
     Dosage: 4 MG AT BEDTIME PO
     Route: 048
     Dates: start: 20090226, end: 20090310

REACTIONS (2)
  - DIZZINESS [None]
  - DRUG INTOLERANCE [None]
